FAERS Safety Report 9477034 (Version 3)
Quarter: 2013Q4

REPORT INFORMATION
  Report Type: Spontaneous
  Country: US (occurrence: US)
  Receive Date: 20130826
  Receipt Date: 20131217
  Transmission Date: 20140711
  Serious: Yes (Hospitalization, Other)
  Sender: FDA-Public Use
  Company Number: US-PFIZER INC-2013246067

PATIENT
  Age: 41 Year
  Sex: Female

DRUGS (6)
  1. XANAX [Suspect]
     Dosage: 0.5 MG, UNK
  2. XANAX [Suspect]
     Dosage: 1 MG, UNK
  3. REVATIO [Suspect]
     Dosage: UNK
  4. ALPRAZOLAM [Concomitant]
     Dosage: 1 MG, UNK
  5. CARISOPRODOL [Concomitant]
     Dosage: 350 MG, UNK
  6. HYDROCODONE APAP [Concomitant]
     Dosage: UNK

REACTIONS (3)
  - Mental disorder [Unknown]
  - Amnesia [Unknown]
  - Road traffic accident [Unknown]
